FAERS Safety Report 5959750-8 (Version None)
Quarter: 2008Q4

REPORT INFORMATION
  Report Type: 
  Country: None (occurrence: None)
  Receive Date: 20081119
  Receipt Date: 20081119
  Transmission Date: 20090506
  Serious: Yes (Hospitalization)
  Sender: FDA-Public Use
  Company Number: None

PATIENT
  Age: 81 Year
  Sex: Male

DRUGS (2)
  1. QUETIAPINE FUMARATE [Suspect]
     Indication: AGITATION
     Dosage: 50MG PO QID + 25MG
     Route: 048
     Dates: start: 20080906
  2. LORAZEPAM [Concomitant]

REACTIONS (2)
  - FALL [None]
  - GAIT DISTURBANCE [None]
